FAERS Safety Report 23431518 (Version 1)
Quarter: 2024Q1

REPORT INFORMATION
  Report Type: Spontaneous
  Country: US (occurrence: US)
  Receive Date: 20240123
  Receipt Date: 20240123
  Transmission Date: 20240409
  Serious: No
  Sender: FDA-Public Use
  Company Number: US-SANOFI-01675113

PATIENT
  Age: 85 Year
  Sex: Male

DRUGS (16)
  1. DUPIXENT [Suspect]
     Active Substance: DUPILUMAB
     Indication: Dermatitis atopic
     Dosage: 300 MG, QOW
     Route: 058
  2. ATORVASTATIN [Concomitant]
     Active Substance: ATORVASTATIN
  3. CEPHALEXIN [Concomitant]
     Active Substance: CEPHALEXIN
  4. EZETIMIBE [Concomitant]
     Active Substance: EZETIMIBE
  5. FINASTERIDE [Concomitant]
     Active Substance: FINASTERIDE
  6. FOLIC ACID [Concomitant]
     Active Substance: FOLIC ACID
  7. HUMIRA [Concomitant]
     Active Substance: ADALIMUMAB
  8. JANUMET [Concomitant]
     Active Substance: METFORMIN HYDROCHLORIDE\SITAGLIPTIN PHOSPHATE
  9. METHENAMINE [Concomitant]
     Active Substance: METHENAMINE
  10. METHOTREXATE [Concomitant]
     Active Substance: METHOTREXATE
  11. OMEPRAZOLE [Concomitant]
     Active Substance: OMEPRAZOLE
  12. PREDNISOLONE [Concomitant]
     Active Substance: PREDNISOLONE
  13. SYNTHROID [Concomitant]
     Active Substance: LEVOTHYROXINE SODIUM
  14. TAMSULOSIN HYDROCHLORIDE [Concomitant]
     Active Substance: TAMSULOSIN HYDROCHLORIDE
  15. TIMOLOL [Concomitant]
     Active Substance: TIMOLOL
  16. BETAMETHASONE [Concomitant]
     Active Substance: BETAMETHASONE\BETAMETHASONE DIPROPIONATE

REACTIONS (1)
  - Infection [Not Recovered/Not Resolved]
